FAERS Safety Report 9540653 (Version 3)
Quarter: 2013Q4

REPORT INFORMATION
  Report Type: Report from Study
  Country: FI (occurrence: FI)
  Receive Date: 20130920
  Receipt Date: 20131009
  Transmission Date: 20140711
  Serious: Yes (Other)
  Sender: FDA-Public Use
  Company Number: FI-ROCHE-1277102

PATIENT
  Age: 47 Year
  Sex: Male

DRUGS (7)
  1. RITUXIMAB [Suspect]
     Indication: NON-HODGKIN^S LYMPHOMA
     Route: 065
     Dates: start: 201211, end: 201305
  2. RITUXIMAB [Suspect]
     Route: 065
     Dates: start: 201307
  3. RITUXIMAB [Suspect]
     Route: 065
     Dates: start: 201309
  4. CYCLOPHOSPHAMIDE [Concomitant]
     Indication: NON-HODGKIN^S LYMPHOMA
     Route: 065
     Dates: start: 201211, end: 201305
  5. DOXORUBICIN [Concomitant]
     Indication: NON-HODGKIN^S LYMPHOMA
     Route: 065
     Dates: start: 201211, end: 201305
  6. VINCRISTINE [Concomitant]
     Indication: NON-HODGKIN^S LYMPHOMA
     Route: 065
     Dates: start: 201211, end: 201305
  7. PREDNISOLONE [Concomitant]
     Indication: NON-HODGKIN^S LYMPHOMA
     Route: 065
     Dates: start: 201211, end: 201305

REACTIONS (2)
  - Neck mass [Not Recovered/Not Resolved]
  - Local swelling [Not Recovered/Not Resolved]
